FAERS Safety Report 5957184-3 (Version None)
Quarter: 2008Q4

REPORT INFORMATION
  Report Type: 
  Country: None (occurrence: None)
  Receive Date: 20081118
  Receipt Date: 20081106
  Transmission Date: 20090506
  Serious: Yes (Hospitalization)
  Sender: FDA-Public Use
  Company Number: DE-ROCHE-593237

PATIENT
  Sex: Female
  Weight: 52.6 kg

DRUGS (5)
  1. CAPECITABINE [Suspect]
     Indication: BREAST CANCER METASTATIC
     Dosage: INDICATION REPORTED:MAMMA- CA.
     Route: 048
     Dates: start: 20081001
  2. EPOETIN BETA [Suspect]
     Indication: DRUG USE FOR UNKNOWN INDICATION
     Dosage: FREQUENCY AS PER PROTOCOL450IE/KG DAY 1 OF FIRSTCHEMOTHERAPY CYCLE EVERY 7 DAYS THEREAFTER.
     Route: 058
     Dates: start: 20080917
  3. EPIRUBICIN [Suspect]
     Indication: BREAST CANCER METASTATIC
     Dosage: INDICATION REPORTED MAMMA CA.FREQUENCY AS PER PROTOCOL DAY 1 Q 15 DAYS
     Route: 042
     Dates: start: 20080401, end: 20080917
  4. PACLITAXEL [Suspect]
     Indication: BREAST CANCER METASTATIC
     Dosage: INDICATION REPORTED:MAMMA CA. FREQUENCY AS PER PROTOCOL DAY 1, Q 8  DAYS FOR 10 CYCLES.
     Route: 042
     Dates: start: 20081001
  5. CYCLOPHOSPHAMIDE [Suspect]
     Indication: BREAST CANCER METASTATIC
     Dosage: INDICATION REPORTED:MAMMA CA. FREQUENCY AS PER PROTOCOL DAY 1 Q 15 DAYS FOR 4 CYCLES.
     Route: 042
     Dates: start: 20080401, end: 20080917

REACTIONS (4)
  - DIARRHOEA [None]
  - GENERAL PHYSICAL HEALTH DETERIORATION [None]
  - PNEUMONIA [None]
  - PYREXIA [None]
